FAERS Safety Report 6962040-8 (Version None)
Quarter: 2010Q3

REPORT INFORMATION
  Report Type: 
  Country: None (occurrence: None)
  Receive Date: 20100902
  Receipt Date: 20100818
  Transmission Date: 20110219
  Serious: Yes (Death, Other)
  Sender: FDA-Public Use
  Company Number: US-BAYER-201024907NA

PATIENT
  Age: 15 Year
  Sex: Female
  Weight: 75 kg

DRUGS (6)
  1. YAZ [Suspect]
     Indication: MENORRHAGIA
     Route: 048
     Dates: start: 20080201, end: 20080612
  2. FLUOXETINE [Concomitant]
     Dosage: UNIT DOSE: 10 MG
     Dates: start: 20080201, end: 20080501
  3. WELLBUTRIN XL [Concomitant]
     Dates: start: 20080201, end: 20080601
  4. PRILOSEC [Concomitant]
     Indication: GASTRIC DISORDER
  5. DRAMAMINE [Concomitant]
  6. PROZAC [Concomitant]

REACTIONS (1)
  - PULMONARY EMBOLISM [None]
